FAERS Safety Report 9341960 (Version 1)
Quarter: 2013Q2

REPORT INFORMATION
  Report Type: Other
  Country: GB (occurrence: GB)
  Receive Date: 20130611
  Receipt Date: 20130611
  Transmission Date: 20140414
  Serious: Yes (Other)
  Sender: FDA-Public Use
  Company Number: GB-MYLANLABS-2013S1011911

PATIENT
  Age: 2 Year
  Sex: Female

DRUGS (2)
  1. AMOXICILLIN + CLAVULANIC ACID [Suspect]
     Route: 065
  2. AZITHROMYCIN [Suspect]
     Route: 065

REACTIONS (1)
  - Drug reaction with eosinophilia and systemic symptoms [Unknown]
